FAERS Safety Report 17010002 (Version 1)
Quarter: 2019Q4

REPORT INFORMATION
  Report Type: Spontaneous
  Country: US (occurrence: US)
  Receive Date: 20191108
  Receipt Date: 20191108
  Transmission Date: 20200122
  Serious: No
  Sender: FDA-Public Use
  Company Number: US-PFIZER INC-2019478945

PATIENT
  Age: 63 Year
  Sex: Male

DRUGS (2)
  1. CHANTIX [Suspect]
     Active Substance: VARENICLINE TARTRATE
     Indication: SMOKING CESSATION THERAPY
     Dosage: UNK
  2. QUETIAPINE. [Concomitant]
     Active Substance: QUETIAPINE
     Indication: SLEEP DISORDER
     Dosage: UNK

REACTIONS (5)
  - Pain in extremity [Unknown]
  - Therapeutic product effect decreased [Unknown]
  - Food poisoning [Unknown]
  - Sciatic nerve injury [Unknown]
  - Weight decreased [Unknown]
